FAERS Safety Report 8339520-6 (Version None)
Quarter: 2012Q2

REPORT INFORMATION
  Report Type: 
  Country: None (occurrence: None)
  Receive Date: 20120507
  Receipt Date: 20120426
  Transmission Date: 20120825
  Serious: Yes (Hospitalization)
  Sender: FDA-Public Use
  Company Number: NL-GENZYME-POMP-1002046

PATIENT
  Sex: Female
  Weight: 77 kg

DRUGS (12)
  1. ACETYLCYSTEINE [Concomitant]
     Indication: RESPIRATORY FAILURE
     Dosage: 600 MG, QD
     Dates: start: 20081231
  2. CLEMASTINE [Concomitant]
     Indication: PREMEDICATION
     Dosage: 2 MG, ONCE
     Route: 042
     Dates: start: 20110209, end: 20110209
  3. CALCIUM CARBONATE [Concomitant]
     Indication: OSTEOPOROSIS
     Dosage: 500 MG, QD
     Dates: start: 20090202
  4. OXAZEPAM [Concomitant]
     Indication: ANXIETY
     Dosage: 20 MG, BID
     Dates: start: 20081231
  5. FLUTICASONE W [Concomitant]
     Indication: CHRONIC OBSTRUCTIVE PULMONARY DISEASE
     Dosage: 25/125 MG, TID
     Dates: start: 20081231
  6. LACTITOL [Concomitant]
     Indication: CONSTIPATION
     Dosage: 10 MG, QD
     Dates: start: 20090202
  7. SERTRALINE HYDROCHLORIDE [Concomitant]
     Indication: DEPRESSION
     Dosage: 25 MG, QD
     Dates: start: 20081231
  8. BUMETANIDE [Concomitant]
     Indication: DIURETIC THERAPY
     Dosage: 1 MG, BID
     Dates: start: 20081231
  9. ACETAMINOPHEN [Concomitant]
     Indication: PREMEDICATION
     Dosage: 1000 MG, ONCE
     Route: 065
     Dates: start: 20110209, end: 20110209
  10. CLEMASTINE [Concomitant]
     Dosage: 1 MG, ONCE
     Route: 042
     Dates: start: 20110209, end: 20110209
  11. MYOZYME [Suspect]
     Indication: GLYCOGEN STORAGE DISEASE TYPE II
     Dosage: 20 MG, Q2W
     Route: 042
     Dates: start: 20061221
  12. OMEPRAZOLE [Concomitant]
     Indication: GASTRIC DISORDER
     Dosage: 20 MG, QD
     Dates: start: 20081231

REACTIONS (3)
  - LEUKOCYTOSIS [None]
  - C-REACTIVE PROTEIN INCREASED [None]
  - ATELECTASIS [None]
